FAERS Safety Report 4602263-6 (Version None)
Quarter: 2005Q1

REPORT INFORMATION
  Report Type: 
  Country: None (occurrence: None)
  Receive Date: 20050201
  Receipt Date: 20040915
  Transmission Date: 20050727
  Serious: Yes (Other)
  Sender: FDA-Public Use
  Company Number: 200420566BWH

PATIENT
  Age: 67 Year
  Sex: Male
  Weight: 81.1939 kg

DRUGS (4)
  1. AVELOX [Suspect]
     Indication: WOUND
     Dosage: 400 MG, TOTAL DAILY, ORAL
     Route: 048
     Dates: start: 20040902, end: 20040905
  2. SOY/PRIMROSE/ CALCIUM [Concomitant]
  3. LOTREL [Concomitant]
  4. ASPIRIN [Concomitant]

REACTIONS (7)
  - ANOREXIA [None]
  - ASTHENIA [None]
  - CHEST PAIN [None]
  - DIZZINESS [None]
  - DYSPNOEA [None]
  - HYPERTENSION [None]
  - MOOD SWINGS [None]
